FAERS Safety Report 4427596-8 (Version None)
Quarter: 2004Q3

REPORT INFORMATION
  Report Type: 
  Country: None (occurrence: None)
  Receive Date: 20040816
  Receipt Date: 20040816
  Transmission Date: 20050211
  Serious: Yes (Hospitalization)
  Sender: FDA-Public Use
  Company Number: None

PATIENT
  Age: 72 Year
  Sex: Male
  Weight: 120.6568 kg

DRUGS (9)
  1. DAPTOMYCIN [Suspect]
     Indication: ARTHRITIS BACTERIAL
     Dosage: 450 MG IV Q DAY
     Route: 042
     Dates: start: 20040519, end: 20040528
  2. DAPTOMYCIN [Suspect]
     Indication: MEDICAL DEVICE SITE REACTION
     Dosage: 450 MG IV Q DAY
     Route: 042
     Dates: start: 20040519, end: 20040528
  3. DAPTOMYCIN [Suspect]
     Indication: STAPHYLOCOCCAL INFECTION
     Dosage: 450 MG IV Q DAY
     Route: 042
     Dates: start: 20040519, end: 20040528
  4. CRESTOR [Concomitant]
  5. LISINOPRIL [Concomitant]
  6. DITROPAN [Concomitant]
  7. PAXIL [Concomitant]
  8. AVANDIA [Concomitant]
  9. GLUCOPHAGE [Concomitant]

REACTIONS (1)
  - RHABDOMYOLYSIS [None]
